FAERS Safety Report 5315984-7 (Version None)
Quarter: 2007Q2

REPORT INFORMATION
  Report Type: 
  Country: None (occurrence: None)
  Receive Date: 20070503
  Receipt Date: 20070423
  Transmission Date: 20071010
  Serious: Yes (Other)
  Sender: FDA-Public Use
  Company Number: US-ROCHE-490155

PATIENT
  Age: 60 Year
  Sex: Male
  Weight: 78.9 kg

DRUGS (6)
  1. PEGASYS [Suspect]
     Dosage: THERAPY STOPPED FOR ONE WEEK ON AN UNSPECIFIED DATE.
     Route: 058
     Dates: start: 20070112
  2. PEGASYS [Suspect]
     Route: 058
     Dates: start: 20070128
  3. RIBAVIRIN [Suspect]
     Dosage: THERAPY STOPPED FOR ONE WEEK ON AN UNSPECIFIED DATE.
     Route: 048
     Dates: start: 20070112
  4. RIBAVIRIN [Suspect]
     Route: 048
     Dates: start: 20070128
  5. PROCRIT [Concomitant]
     Route: 058
     Dates: start: 20070212
  6. NEUPOGEN [Concomitant]
     Route: 058
     Dates: start: 20070209

REACTIONS (18)
  - ANXIETY [None]
  - ARTHRALGIA [None]
  - DECREASED ACTIVITY [None]
  - DECREASED APPETITE [None]
  - DEPRESSION [None]
  - DYSPNOEA [None]
  - FATIGUE [None]
  - FEELING ABNORMAL [None]
  - HAEMOGLOBIN DECREASED [None]
  - INSOMNIA [None]
  - IRRITABILITY [None]
  - LIBIDO DECREASED [None]
  - MENTAL IMPAIRMENT [None]
  - PARAESTHESIA [None]
  - RASH [None]
  - RED BLOOD CELL COUNT DECREASED [None]
  - SERUM FERRITIN INCREASED [None]
  - WHITE BLOOD CELL COUNT DECREASED [None]
